FAERS Safety Report 10255877 (Version 3)
Quarter: 2014Q3

REPORT INFORMATION
  Report Type: Spontaneous
  Country: US (occurrence: US)
  Receive Date: 20140624
  Receipt Date: 20140812
  Transmission Date: 20150326
  Serious: Yes (Hospitalization)
  Sender: FDA-Public Use
  Company Number: US-GLAXOSMITHKLINE-A0757482A

PATIENT
  Sex: Male
  Weight: 79.5 kg

DRUGS (1)
  1. AVANDIA [Suspect]
     Active Substance: ROSIGLITAZONE MALEATE
     Indication: TYPE 2 DIABETES MELLITUS
     Dosage: 4MG PER DAY
     Route: 048
     Dates: start: 200601, end: 200708

REACTIONS (5)
  - Visual field defect [Unknown]
  - Visual impairment [Unknown]
  - Cerebrovascular accident [Unknown]
  - Blindness [Unknown]
  - Cerebral infarction [Unknown]
